FAERS Safety Report 7764576-9 (Version None)
Quarter: 2011Q3

REPORT INFORMATION
  Report Type: 
  Country: None (occurrence: None)
  Receive Date: 20110921
  Receipt Date: 20110915
  Transmission Date: 20111222
  Serious: Yes (Other)
  Sender: FDA-Public Use
  Company Number: JP-PFIZER INC-2011218869

PATIENT
  Age: 81 Year
  Sex: Female

DRUGS (1)
  1. LYRICA [Suspect]
     Indication: OSTEOARTHRITIS
     Dosage: 75 MG/DAY
     Route: 048
     Dates: start: 20110825, end: 20110825

REACTIONS (2)
  - ASTHENIA [None]
  - ASTHMA [None]
